FAERS Safety Report 8536064-3 (Version None)
Quarter: 2012Q3

REPORT INFORMATION
  Report Type: 
  Country: None (occurrence: None)
  Receive Date: 20120725
  Receipt Date: 20120719
  Transmission Date: 20120928
  Serious: Yes (Death, Life-Threatening, Other)
  Sender: FDA-Public Use
  Company Number: JP-BRISTOL-MYERS SQUIBB COMPANY-16510901

PATIENT
  Age: 68 Year
  Sex: Male

DRUGS (12)
  1. PROMETHAZINE HCL [Concomitant]
     Dosage: TAB
     Dates: start: 20120301
  2. ABILIFY [Suspect]
     Indication: BIPOLAR DISORDER
     Dosage: 23JAN12-08MAR12;46D,09MAR12-16MAR12;8D;30MG
     Route: 048
     Dates: start: 20120123, end: 20120316
  3. DIMETICONE [Concomitant]
     Dosage: TAB
     Dates: end: 20120316
  4. FLUNITRAZEPAM [Concomitant]
     Dosage: TAB
     Dates: end: 20120316
  5. LEVOTOMIN [Suspect]
     Indication: BIPOLAR DISORDER
     Dosage: UNK-09FEB12,25MG 10FEB-01MAR12,25MG 09-11MAR12,25MG 12-15MAR12,50MG,TID 16MAR12-UNK,75MG,QD
     Route: 048
  6. LITHIUM CARBONATE [Concomitant]
     Dosage: TAB
     Dates: end: 20120316
  7. SENNOSIDE [Concomitant]
     Dosage: TAB
     Dates: end: 20120316
  8. BROTIZOLAM [Concomitant]
     Dosage: TAB
     Dates: end: 20120316
  9. LAMICTAL [Suspect]
     Indication: BIPOLAR DISORDER
     Dosage: TAB, 16JAN12-29JAN12 25MG, 30JAN12-9FEB12 50MG,10FEB-23FEB12,75MG QD;24FEB-16MAR12M50MG,BID
     Route: 048
     Dates: start: 20120116
  10. PROMETHAZINE HCL [Concomitant]
     Dates: start: 20120301, end: 20120301
  11. MAGMITT [Concomitant]
     Dosage: TAB
     Dates: end: 20120316
  12. NITRAZEPAM [Concomitant]
     Dosage: TAB
     Dates: end: 20120316

REACTIONS (6)
  - ASPARTATE AMINOTRANSFERASE INCREASED [None]
  - PYREXIA [None]
  - SEDATION [None]
  - BLOOD CREATINE PHOSPHOKINASE INCREASED [None]
  - DEATH [None]
  - WHITE BLOOD CELL COUNT INCREASED [None]
